FAERS Safety Report 5030813-7 (Version None)
Quarter: 2006Q2

REPORT INFORMATION
  Report Type: 
  Country: None (occurrence: None)
  Receive Date: 20060614
  Receipt Date: 20060531
  Transmission Date: 20061013
  Serious: Yes (Other)
  Sender: FDA-Public Use
  Company Number: 2006000639

PATIENT
  Age: 64 Year
  Sex: Male

DRUGS (2)
  1. TARCEVA [Suspect]
     Indication: BRONCHIAL CARCINOMA
     Dosage: 150 MG, ORAL
     Route: 048
     Dates: start: 20060111, end: 20060123
  2. BETAMETHASONE [Concomitant]

REACTIONS (11)
  - ANOREXIA [None]
  - ASTHENIA [None]
  - GENERAL PHYSICAL HEALTH DETERIORATION [None]
  - HEPATITIS CHOLESTATIC [None]
  - HYPOAESTHESIA [None]
  - INSOMNIA [None]
  - RASH PUSTULAR [None]
  - REFUSAL OF TREATMENT BY PATIENT [None]
  - SPUTUM PURULENT [None]
  - THERAPY NON-RESPONDER [None]
  - WEIGHT DECREASED [None]
